FAERS Safety Report 7366651-X (Version None)
Quarter: 2011Q1

REPORT INFORMATION
  Report Type: 
  Country: None (occurrence: None)
  Receive Date: 20110311
  Receipt Date: 20110224
  Transmission Date: 20110831
  Serious: Yes (Other)
  Sender: FDA-Public Use
  Company Number: 2011FR0051

PATIENT
  Sex: Female

DRUGS (1)
  1. KINERET [Suspect]
     Indication: JUVENILE ARTHRITIS

REACTIONS (1)
  - HEPATITIS [None]
